FAERS Safety Report 8977960 (Version 1)
Quarter: 2012Q4

REPORT INFORMATION
  Report Type: Report from Study
  Country: US (occurrence: US)
  Receive Date: 20121220
  Receipt Date: 20121220
  Transmission Date: 20130627
  Serious: Yes (Death, Other)
  Sender: FDA-Public Use
  Company Number: US-ROCHE-1170523

PATIENT
  Age: 60 Year
  Sex: Male

DRUGS (5)
  1. OMALIZUMAB [Suspect]
     Indication: INFLAMMATION
     Route: 058
     Dates: start: 20080719, end: 20090605
  2. ALBUTEROL [Concomitant]
     Route: 055
  3. FLOVENT HFA [Concomitant]
  4. SINGULAIR [Concomitant]
  5. XOPENEX HFA [Concomitant]

REACTIONS (2)
  - Road traffic accident [Unknown]
  - Death [Fatal]
